APPROVED DRUG PRODUCT: CLOBEX
Active Ingredient: CLOBETASOL PROPIONATE
Strength: 0.05%
Dosage Form/Route: LOTION;TOPICAL
Application: N021535 | Product #001 | TE Code: AB
Applicant: GALDERMA LABORATORIES L P
Approved: Jul 24, 2003 | RLD: Yes | RS: Yes | Type: RX